FAERS Safety Report 5122471-8 (Version None)
Quarter: 2006Q4

REPORT INFORMATION
  Report Type: 
  Country: None (occurrence: None)
  Receive Date: 20061004
  Receipt Date: 20060922
  Transmission Date: 20070319
  Serious: Yes (Death)
  Sender: FDA-Public Use
  Company Number: MC200600661

PATIENT
  Age: 62 Year
  Sex: Male

DRUGS (3)
  1. ANGIOMAX [Suspect]
     Indication: PERCUTANEOUS CORONARY INTERVENTION
     Dosage: 0.75 MG/KG, BOLUS, IV BOLUS; SEE IMAGE
     Route: 040
     Dates: start: 20060921, end: 20060921
  2. ANGIOMAX [Suspect]
     Indication: PERCUTANEOUS CORONARY INTERVENTION
     Dosage: 0.75 MG/KG, BOLUS, IV BOLUS; SEE IMAGE
     Route: 040
     Dates: start: 20060921, end: 20060921
  3. ASPIRIN [Concomitant]

REACTIONS (3)
  - CARDIO-RESPIRATORY ARREST [None]
  - DYSPNOEA [None]
  - PULMONARY EMBOLISM [None]
